FAERS Safety Report 11400077 (Version 2)
Quarter: 2015Q3

REPORT INFORMATION
  Report Type: Spontaneous
  Country: US (occurrence: US)
  Receive Date: 20150820
  Receipt Date: 20150825
  Transmission Date: 20151125
  Serious: Yes (Hospitalization, Disabling, Other)
  Sender: FDA-Public Use
  Company Number: US-009507513-1203USA02838

PATIENT
  Sex: Female

DRUGS (2)
  1. FOSAMAX [Suspect]
     Active Substance: ALENDRONATE SODIUM
     Indication: BONE DENSITY DECREASED
     Dosage: 70 MG, QW
     Route: 048
     Dates: start: 20050902
  2. ALENDRONATE SODIUM. [Suspect]
     Active Substance: ALENDRONATE SODIUM
     Indication: BONE DENSITY DECREASED
     Dosage: 70 MG, QW
     Route: 048
     Dates: start: 20080225, end: 20110627

REACTIONS (18)
  - Medical device complication [Unknown]
  - Femur fracture [Unknown]
  - Gastrooesophageal reflux disease [Unknown]
  - Hernia [Unknown]
  - Rotator cuff syndrome [Unknown]
  - Hyperlipidaemia [Unknown]
  - Fracture nonunion [Unknown]
  - Hysterectomy [Unknown]
  - Asthma [Unknown]
  - Depression [Unknown]
  - Intervertebral disc protrusion [Not Recovered/Not Resolved]
  - Arthritis [Not Recovered/Not Resolved]
  - Appendicectomy [Unknown]
  - Cholecystectomy [Unknown]
  - Skin graft [Unknown]
  - Osteoarthritis [Unknown]
  - Hypertension [Unknown]
  - Varicose vein [Unknown]

NARRATIVE: CASE EVENT DATE: 20051001
